FAERS Safety Report 7714384-X (Version None)
Quarter: 2011Q3

REPORT INFORMATION
  Report Type: 
  Country: None (occurrence: None)
  Receive Date: 20110829
  Receipt Date: 20110204
  Transmission Date: 20111222
  Serious: No
  Sender: FDA-Public Use
  Company Number: US-BAYER-2011-012834

PATIENT
  Sex: Female

DRUGS (2)
  1. MIRENA [Suspect]
     Indication: PRODUCT USED FOR UNKNOWN INDICATION
     Dosage: 20 ?G/D, UNK
     Route: 015
     Dates: start: 20101230
  2. BENADRYL ALLERGY [DIPHENHYDRAMINE HYDROCHLORIDE,PHENYLALANINE] [Concomitant]
     Indication: PRURITUS

REACTIONS (2)
  - PRURITUS [None]
  - URTICARIA [None]
